FAERS Safety Report 9927412 (Version 2)
Quarter: 2014Q2

REPORT INFORMATION
  Report Type: Report from Study
  Country: BE (occurrence: BE)
  Receive Date: 20140226
  Receipt Date: 20140408
  Transmission Date: 20141212
  Serious: Yes (Hospitalization, Other)
  Sender: FDA-Public Use
  Company Number: PHHY2014BE022564

PATIENT
  Sex: Male
  Weight: 78 kg

DRUGS (1)
  1. INDACATEROL [Suspect]
     Indication: CHRONIC OBSTRUCTIVE PULMONARY DISEASE
     Dosage: 300 UG, QD
     Route: 055
     Dates: start: 20130708, end: 20131031

REACTIONS (5)
  - Pneumonia aspiration [Recovered/Resolved]
  - Atrioventricular block [Unknown]
  - Pleural effusion [Unknown]
  - Cholelithiasis [Unknown]
  - Urinary tract infection [Unknown]
